FAERS Safety Report 5046432-2 (Version None)
Quarter: 2006Q3

REPORT INFORMATION
  Report Type: 
  Country: None (occurrence: None)
  Receive Date: 20060706
  Receipt Date: 20060706
  Transmission Date: 20061208
  Serious: Yes (Other)
  Sender: FDA-Public Use
  Company Number: None

PATIENT
  Age: 39 Year
  Sex: Female
  Weight: 63.5036 kg

DRUGS (6)
  1. KENALOG [Suspect]
     Indication: DYSGEUSIA
     Dosage: BI-ANNUALLY
     Dates: start: 20050820, end: 20050820
  2. KENALOG [Suspect]
     Indication: NEURALGIA
     Dosage: BI-ANNUALLY
     Dates: start: 20050820, end: 20050820
  3. KENALOG [Suspect]
     Indication: DYSGEUSIA
     Dosage: BI-ANNUALLY
     Dates: start: 20060516, end: 20060516
  4. KENALOG [Suspect]
     Indication: NEURALGIA
     Dosage: BI-ANNUALLY
     Dates: start: 20060516, end: 20060516
  5. TEMAZEPAM [Concomitant]
  6. LIPITOR [Concomitant]

REACTIONS (7)
  - ANXIETY [None]
  - DEPRESSION [None]
  - DRY MOUTH [None]
  - DYSGEUSIA [None]
  - GLOSSODYNIA [None]
  - HYPOGEUSIA [None]
  - PRESCRIBED OVERDOSE [None]
